FAERS Safety Report 9593113 (Version 1)
Quarter: 2013Q4

REPORT INFORMATION
  Report Type: Report from Study
  Country: US (occurrence: US)
  Receive Date: 20131004
  Receipt Date: 20131004
  Transmission Date: 20140711
  Serious: Yes (Hospitalization)
  Sender: FDA-Public Use
  Company Number: US-ROCHE-1284272

PATIENT
  Sex: Male

DRUGS (6)
  1. XELODA [Suspect]
     Indication: HEPATIC CANCER
     Dosage: 14 DAYS ON / 7 DAYS OFF
     Route: 065
  2. XELODA [Suspect]
     Indication: LUNG NEOPLASM MALIGNANT
  3. XELODA [Suspect]
     Indication: NEOPLASM MALIGNANT
  4. XELODA [Suspect]
     Indication: PANCREATIC CARCINOMA
  5. NORVASC [Concomitant]
     Indication: HYPERTENSION
  6. SYNTHROID [Concomitant]
     Indication: HYPOTHYROIDISM

REACTIONS (3)
  - Gallbladder disorder [Unknown]
  - Depressed mood [Unknown]
  - Hypophagia [Unknown]
